FAERS Safety Report 20339965 (Version 1)
Quarter: 2022Q1

REPORT INFORMATION
  Report Type: Spontaneous
  Country: US (occurrence: US)
  Receive Date: 20220117
  Receipt Date: 20220117
  Transmission Date: 20220423
  Serious: Yes (Life-Threatening, Hospitalization)
  Sender: FDA-Public Use
  Company Number: US-Vifor (International) Inc.-VIT-2022-00210

PATIENT
  Age: 40 Year
  Sex: Female
  Weight: 138 kg

DRUGS (4)
  1. MIRCERA [Suspect]
     Active Substance: METHOXY POLYETHYLENE GLYCOL-EPOETIN BETA
     Indication: Nephrogenic anaemia
     Route: 040
     Dates: start: 20210917
  2. MIRCERA [Suspect]
     Active Substance: METHOXY POLYETHYLENE GLYCOL-EPOETIN BETA
     Dosage: 7TH DOSE
     Route: 040
     Dates: start: 20211130, end: 20211130
  3. VENOFER [Suspect]
     Active Substance: IRON SUCROSE
     Indication: Product used for unknown indication
     Route: 040
     Dates: start: 20211130
  4. HECTOROL [Suspect]
     Active Substance: DOXERCALCIFEROL
     Indication: Product used for unknown indication
     Route: 040
     Dates: start: 20211130

REACTIONS (3)
  - Drug hypersensitivity [Recovered/Resolved]
  - Unresponsive to stimuli [Recovered/Resolved]
  - Posturing [Recovered/Resolved]

NARRATIVE: CASE EVENT DATE: 20211130
